FAERS Safety Report 4614157-0 (Version None)
Quarter: 2005Q1

REPORT INFORMATION
  Report Type: 
  Country: None (occurrence: None)
  Receive Date: 20050315
  Receipt Date: 20050302
  Transmission Date: 20050727
  Serious: Yes (Hospitalization, Other)
  Sender: FDA-Public Use
  Company Number: 2005040569

PATIENT
  Age: 79 Year
  Sex: Female
  Weight: 65.318 kg

DRUGS (4)
  1. NORVASC [Suspect]
     Indication: HYPERTENSION
     Dosage: 5 MG (5 MG, 1 IN 24 HR), ORAL
     Route: 048
  2. VERAPAMIL [Suspect]
     Indication: ILL-DEFINED DISORDER
     Dates: start: 20030401, end: 20030401
  3. POTASSIUM ACETATE [Concomitant]
  4. DRUG UNSPECIFIED [Suspect]
     Indication: HYPERTENSION

REACTIONS (5)
  - CEREBROVASCULAR ACCIDENT [None]
  - DIZZINESS [None]
  - DRUG EFFECT DECREASED [None]
  - MEDICATION ERROR [None]
  - WALKING AID USER [None]
